FAERS Safety Report 4285360-7 (Version None)
Quarter: 2004Q1

REPORT INFORMATION
  Report Type: 
  Country: None (occurrence: None)
  Receive Date: 20040202
  Receipt Date: 20040119
  Transmission Date: 20041129
  Serious: Yes (Hospitalization)
  Sender: FDA-Public Use
  Company Number: A044-002-004808

PATIENT
  Age: 72 Year
  Sex: Male

DRUGS (8)
  1. MEMAC (DONEPEZIL) (DONEPEZIL HYDROCHLORIDE) [Suspect]
     Indication: DEMENTIA ALZHEIMER'S TYPE
     Dosage: 2.5 MG, 1 IN 1 D, ORAL; 5 MG, 1 IN 1 D, ORAL
     Route: 048
     Dates: start: 20031002, end: 20031001
  2. MEMAC (DONEPEZIL) (DONEPEZIL HYDROCHLORIDE) [Suspect]
     Indication: DEMENTIA ALZHEIMER'S TYPE
     Dosage: 2.5 MG, 1 IN 1 D, ORAL; 5 MG, 1 IN 1 D, ORAL
     Route: 048
     Dates: start: 20031001, end: 20031029
  3. LOPRESSOR [Concomitant]
  4. UNIPRIL (RAMIPRIL) [Concomitant]
  5. SIVASTATIN (SIMVASTATIN) [Concomitant]
  6. DERMATRANS (NITROGLYCERINUM) [Concomitant]
  7. CITALOPRAM [Concomitant]
  8. CLONAZEPAM [Concomitant]

REACTIONS (8)
  - ACUTE PULMONARY OEDEMA [None]
  - AGITATION [None]
  - BLOOD CREATINE PHOSPHOKINASE INCREASED [None]
  - CARDIAC FAILURE CONGESTIVE [None]
  - INSOMNIA [None]
  - ISCHAEMIC CARDIOMYOPATHY [None]
  - SLEEP DISORDER [None]
  - TROPONIN INCREASED [None]
